FAERS Safety Report 6545255-2 (Version None)
Quarter: 2010Q1

REPORT INFORMATION
  Report Type: 
  Country: None (occurrence: None)
  Receive Date: 20100121
  Receipt Date: 20090902
  Transmission Date: 20100710
  Serious: No
  Sender: FDA-Public Use
  Company Number: US-KINGPHARMUSA00001-K200901089

PATIENT
  Sex: Male

DRUGS (1)
  1. EPIPEN JR. [Suspect]
     Dosage: 0.15 MG, SINGLE
     Route: 030
     Dates: start: 20090902, end: 20090902

REACTIONS (2)
  - ACCIDENTAL EXPOSURE [None]
  - EXPIRED DRUG ADMINISTERED [None]
